FAERS Safety Report 11059304 (Version 1)
Quarter: 2015Q2

REPORT INFORMATION
  Report Type: Spontaneous
  Country: US (occurrence: None)
  Receive Date: 20150422
  Receipt Date: 20150422
  Transmission Date: 20150821
  Serious: Yes (Other)
  Sender: FDA-Public Use
  Company Number: None

PATIENT
  Age: 31 Year
  Sex: Female
  Weight: 63.96 kg

DRUGS (2)
  1. BUPRENORPHINE/NALOXONE [Suspect]
     Active Substance: BUPRENORPHINE\NALOXONE
     Dosage: 2/0.5 MG, DAILY, SL
     Route: 060
     Dates: start: 20141126
  2. BUPRENORPHINE/NALOXONE [Suspect]
     Active Substance: BUPRENORPHINE\NALOXONE
     Dosage: 8/2 MG, DAILY, SL
     Route: 060
     Dates: start: 20141126

REACTIONS (3)
  - Pruritus [None]
  - Product formulation issue [None]
  - Rash macular [None]

NARRATIVE: CASE EVENT DATE: 20150414
